FAERS Safety Report 11896001 (Version 1)
Quarter: 2016Q1

REPORT INFORMATION
  Report Type: Spontaneous
  Country: SA (occurrence: SA)
  Receive Date: 20160107
  Receipt Date: 20160107
  Transmission Date: 20160526
  Serious: Yes (Death, Hospitalization)
  Sender: FDA-Public Use
  Company Number: SA-INCYTE CORPORATION-2015IN006721

PATIENT
  Age: 76 Year
  Sex: Male

DRUGS (3)
  1. JAKAFI [Suspect]
     Active Substance: RUXOLITINIB
     Indication: PANCREATIC CARCINOMA
     Dosage: 20 MG, BID
     Route: 048
     Dates: start: 20151209
  2. GEMZAR [Concomitant]
     Active Substance: GEMCITABINE HYDROCHLORIDE
     Indication: PANCREATIC CARCINOMA
     Dosage: 1 G, QW
     Route: 042
  3. GEMZAR [Concomitant]
     Active Substance: GEMCITABINE HYDROCHLORIDE
     Dosage: 1 G, QW
     Route: 042

REACTIONS (5)
  - Pneumonia aspiration [Fatal]
  - Malignant neoplasm progression [Fatal]
  - Product use issue [Unknown]
  - Pancreatic carcinoma [Fatal]
  - Aphasia [Unknown]

NARRATIVE: CASE EVENT DATE: 20151209
